FAERS Safety Report 10017144 (Version 1)
Quarter: 2014Q1

REPORT INFORMATION
  Report Type: Spontaneous
  Country: GB (occurrence: GB)
  Receive Date: 20140318
  Receipt Date: 20140318
  Transmission Date: 20141002
  Serious: Yes (Life-Threatening)
  Sender: FDA-Public Use
  Company Number: GB-DRREDDYS-GER/UKI/14/0038958

PATIENT
  Age: 24 Year
  Sex: Female

DRUGS (7)
  1. LEVETIRACETAM [Suspect]
     Indication: PRODUCT USED FOR UNKNOWN INDICATION
  2. MONTELUKAST [Suspect]
     Indication: PRODUCT USED FOR UNKNOWN INDICATION
  3. PRIADEL [Suspect]
     Indication: PRODUCT USED FOR UNKNOWN INDICATION
  4. RANITIDINE [Suspect]
     Indication: PRODUCT USED FOR UNKNOWN INDICATION
  5. SERETIDE [Suspect]
     Indication: PRODUCT USED FOR UNKNOWN INDICATION
  6. SODIUM VALPROATE [Suspect]
     Indication: PRODUCT USED FOR UNKNOWN INDICATION
  7. VENTOLIN [Suspect]
     Indication: PRODUCT USED FOR UNKNOWN INDICATION

REACTIONS (1)
  - Angioedema [Recovered/Resolved]
